FAERS Safety Report 9305502 (Version 2)
Quarter: 2013Q2

REPORT INFORMATION
  Report Type: Spontaneous
  Country: US (occurrence: US)
  Receive Date: 20130523
  Receipt Date: 20130619
  Transmission Date: 20140414
  Serious: Yes (Hospitalization, Other)
  Sender: FDA-Public Use
  Company Number: US-AMGEN-USASP2013035586

PATIENT
  Age: 87 Year
  Sex: Male
  Weight: 94.7 kg

DRUGS (15)
  1. ARANESP [Suspect]
     Indication: PRODUCT USED FOR UNKNOWN INDICATION
     Dosage: 200 MUG, UNK
     Route: 058
     Dates: start: 20130403, end: 20130516
  2. ATENOLOL [Concomitant]
  3. ATORVASTATIN [Concomitant]
  4. FLUOXETINE [Concomitant]
  5. PATANASE [Concomitant]
  6. OMEPRAZOL                          /00661202/ [Concomitant]
  7. ASPIRIN [Concomitant]
  8. MULTIVITAMIN                       /00097801/ [Concomitant]
  9. VITAMIN B-12 [Concomitant]
  10. EXELON                             /01383201/ [Concomitant]
  11. MELATONIN [Concomitant]
  12. ALLEGRA [Concomitant]
  13. FLAXSEED OIL [Concomitant]
  14. FISH OIL [Concomitant]
  15. VITAMIN C                          /00008001/ [Concomitant]

REACTIONS (5)
  - Febrile neutropenia [Unknown]
  - Thrombophlebitis superficial [Unknown]
  - Cerebral venous thrombosis [Unknown]
  - Deep vein thrombosis [Not Recovered/Not Resolved]
  - Oedema peripheral [Unknown]
